FAERS Safety Report 6004451-3 (Version None)
Quarter: 2008Q4

REPORT INFORMATION
  Report Type: 
  Country: None (occurrence: None)
  Receive Date: 20081216
  Receipt Date: 20081208
  Transmission Date: 20090506
  Serious: Yes (Hospitalization)
  Sender: FDA-Public Use
  Company Number: DE-MERCK-0811DEU00100

PATIENT
  Age: 24 Year
  Sex: Female
  Weight: 48 kg

DRUGS (4)
  1. SINGULAIR [Suspect]
     Route: 048
     Dates: start: 20081125, end: 20081125
  2. CLINDAMYCIN [Suspect]
     Route: 048
     Dates: start: 20081125, end: 20081125
  3. LORAZEPAM [Suspect]
     Route: 048
     Dates: start: 20081125, end: 20081125
  4. ZINC OROTATE [Suspect]
     Route: 048
     Dates: start: 20081125, end: 20081125

REACTIONS (6)
  - ABDOMINAL PAIN [None]
  - HALLUCINATION [None]
  - INTENTIONAL OVERDOSE [None]
  - SOMNOLENCE [None]
  - SUICIDE ATTEMPT [None]
  - SYNCOPE [None]
